FAERS Safety Report 16237056 (Version 1)
Quarter: 2019Q2

REPORT INFORMATION
  Report Type: Spontaneous
  Country: US (occurrence: US)
  Receive Date: 20190425
  Receipt Date: 20190425
  Transmission Date: 20190711
  Serious: Yes (Other)
  Sender: FDA-Public Use
  Company Number: US-TAKEDA-2019TUS015101

PATIENT

DRUGS (32)
  1. METOPROLOL. [Concomitant]
     Active Substance: METOPROLOL
  2. METFORMIN [Concomitant]
     Active Substance: METFORMIN HYDROCHLORIDE
  3. LEVOFLOXACIN. [Concomitant]
     Active Substance: LEVOFLOXACIN
  4. COMBIVENT [Concomitant]
     Active Substance: ALBUTEROL SULFATE\IPRATROPIUM BROMIDE
  5. ATORVASTATIN [Concomitant]
     Active Substance: ATORVASTATIN
  6. PREDNISONE. [Concomitant]
     Active Substance: PREDNISONE
  7. CEFUROXIME. [Concomitant]
     Active Substance: CEFUROXIME
  8. FLUCONAZOLE. [Concomitant]
     Active Substance: FLUCONAZOLE
  9. CELEBREX [Concomitant]
     Active Substance: CELECOXIB
  10. PRILOSEC [Suspect]
     Active Substance: OMEPRAZOLE MAGNESIUM
     Indication: GASTROOESOPHAGEAL REFLUX DISEASE
     Dosage: 40 MILLIGRAM, QD
     Route: 048
     Dates: start: 20111017, end: 20150714
  11. OMEPRAZOLE. [Suspect]
     Active Substance: OMEPRAZOLE
     Indication: GASTROOESOPHAGEAL REFLUX DISEASE
     Dosage: 40 MILLIGRAM, BID
     Route: 048
     Dates: start: 20110521, end: 20150116
  12. ONDANSETRON [Concomitant]
     Active Substance: ONDANSETRON
     Dosage: UNK
  13. LOPERAMIDE [Concomitant]
     Active Substance: LOPERAMIDE
  14. DEXILANT [Suspect]
     Active Substance: DEXLANSOPRAZOLE
     Indication: GASTROOESOPHAGEAL REFLUX DISEASE
     Dosage: 60 MILLIGRAM, QD
     Route: 048
     Dates: start: 20180724
  15. MORPHINE [Concomitant]
     Active Substance: MORPHINE
  16. FENTANYL. [Concomitant]
     Active Substance: FENTANYL
  17. BUMETANIDE. [Concomitant]
     Active Substance: BUMETANIDE
  18. ADVAIR HFA [Concomitant]
     Active Substance: FLUTICASONE PROPIONATE\SALMETEROL XINAFOATE
  19. OXYCODONE W/APAP [Concomitant]
     Active Substance: ACETAMINOPHEN\OXYCODONE HYDROCHLORIDE
  20. AMLODIPINE [Concomitant]
     Active Substance: AMLODIPINE BESYLATE
  21. ATROVENT [Concomitant]
     Active Substance: IPRATROPIUM BROMIDE
  22. MOBIC [Concomitant]
     Active Substance: MELOXICAM
  23. PREVACID [Suspect]
     Active Substance: LANSOPRAZOLE
     Indication: GASTROOESOPHAGEAL REFLUX DISEASE
     Dosage: 40 MILLIGRAM, BID
     Route: 048
     Dates: start: 20080407, end: 20150414
  24. PROTONIX [Suspect]
     Active Substance: PANTOPRAZOLE SODIUM
     Indication: GASTROOESOPHAGEAL REFLUX DISEASE
     Dosage: 20 MILLIGRAM, QD
     Route: 048
     Dates: start: 20050531, end: 20160723
  25. LEVEMIR [Concomitant]
     Active Substance: INSULIN DETEMIR
  26. KLOR-CON [Concomitant]
     Active Substance: POTASSIUM CHLORIDE
  27. BACLOFEN. [Concomitant]
     Active Substance: BACLOFEN
  28. FUROSEMIDE. [Concomitant]
     Active Substance: FUROSEMIDE
  29. NEXIUM [Suspect]
     Active Substance: ESOMEPRAZOLE MAGNESIUM
     Indication: GASTROOESOPHAGEAL REFLUX DISEASE
     Dosage: 40 MILLIGRAM, BID
     Route: 048
     Dates: start: 20150630, end: 20160707
  30. VALSARTAN. [Concomitant]
     Active Substance: VALSARTAN
  31. RANITIDINE. [Concomitant]
     Active Substance: RANITIDINE
  32. FLUTICASONE. [Concomitant]
     Active Substance: FLUTICASONE

REACTIONS (4)
  - Renal failure [Not Recovered/Not Resolved]
  - Acute kidney injury [Not Recovered/Not Resolved]
  - Chronic kidney disease [Recovered/Resolved]
  - Renal injury [Unknown]

NARRATIVE: CASE EVENT DATE: 20150101
